FAERS Safety Report 16843569 (Version 1)
Quarter: 2019Q3

REPORT INFORMATION
  Report Type: Spontaneous
  Country: US (occurrence: US)
  Receive Date: 20190924
  Receipt Date: 20190924
  Transmission Date: 20191005
  Serious: Yes (Hospitalization, Other)
  Sender: FDA-Public Use
  Company Number: US-AUROBINDO-AUR-APL-2019-062394

PATIENT
  Age: 23 Month
  Sex: Female

DRUGS (2)
  1. CLONIDINE TABLET 0.1 MG [Suspect]
     Active Substance: CLONIDINE
     Indication: PRODUCT USED FOR UNKNOWN INDICATION
     Dosage: 0.1 MILLIGRAM, 8 TABLETS WERE MISSING
     Route: 065
  2. CLONIDINE TABLET 0.1 MG [Suspect]
     Active Substance: CLONIDINE
     Dosage: UNK
     Route: 065

REACTIONS (10)
  - Unresponsive to stimuli [Recovered/Resolved]
  - Apnoea [Recovered/Resolved]
  - Pulse absent [Recovered/Resolved]
  - Bradycardia [Recovered/Resolved]
  - Lethargy [Recovered/Resolved]
  - Heart rate decreased [Recovered/Resolved]
  - Accidental overdose [Unknown]
  - Somnolence [Recovered/Resolved]
  - Toxicity to various agents [Unknown]
  - Depressed level of consciousness [Recovered/Resolved]
